FAERS Safety Report 9204533 (Version 1)
Quarter: 2013Q1

REPORT INFORMATION
  Report Type: Spontaneous
  Country: US (occurrence: None)
  Receive Date: 20120709
  Receipt Date: 20120709
  Transmission Date: 20140127
  Serious: Yes (Other)
  Sender: FDA-Public Use
  Company Number: PHHY2011US45023

PATIENT
  Age: 54 Year
  Sex: Male
  Weight: 141 kg

DRUGS (4)
  1. GLEEVEC [Suspect]
     Indication: CHRONIC MYELOID LEUKAEMIA
     Dates: start: 20081110
  2. GABAPENTIN (GABAPENTIN) [Concomitant]
  3. OXYCODONE (OXYCODONE) [Concomitant]
  4. PERCOCET [Concomitant]

REACTIONS (3)
  - Rash erythematous [None]
  - Muscle spasms [None]
  - Movement disorder [None]
